FAERS Safety Report 7291087-X (Version None)
Quarter: 2011Q1

REPORT INFORMATION
  Report Type: 
  Country: None (occurrence: None)
  Receive Date: 20110214
  Receipt Date: 20110203
  Transmission Date: 20110831
  Serious: Yes (Hospitalization, Other)
  Sender: FDA-Public Use
  Company Number: US-ASTRAZENECA-2010SE10638

PATIENT
  Age: 50 Year
  Sex: Female

DRUGS (2)
  1. NEXIUM [Suspect]
     Route: 048
  2. CRESTOR [Suspect]
     Route: 048

REACTIONS (7)
  - CEREBRAL HAEMORRHAGE [None]
  - HEADACHE [None]
  - BRAIN INJURY [None]
  - NASOPHARYNGITIS [None]
  - AMNESIA [None]
  - BRAIN OEDEMA [None]
  - DRUG DOSE OMISSION [None]
